FAERS Safety Report 10176193 (Version 1)
Quarter: 2014Q2

REPORT INFORMATION
  Report Type: Spontaneous
  Country: US (occurrence: None)
  Receive Date: 20140515
  Receipt Date: 20140515
  Transmission Date: 20141212
  Serious: No
  Sender: FDA-Public Use
  Company Number: None

PATIENT
  Sex: 0

DRUGS (1)
  1. CARIMUNE [Suspect]
     Dates: start: 20140509

REACTIONS (3)
  - Wrong technique in drug usage process [None]
  - Product packaging confusion [None]
  - Product quality issue [None]
